FAERS Safety Report 14798326 (Version 2)
Quarter: 2019Q2

REPORT INFORMATION
  Report Type: Spontaneous
  Country: US (occurrence: US)
  Receive Date: 20180424
  Receipt Date: 20190409
  Transmission Date: 20190711
  Serious: No
  Sender: FDA-Public Use
  Company Number: US-PFIZER INC-2018167345

PATIENT
  Age: 49 Year
  Sex: Male
  Weight: 118 kg

DRUGS (5)
  1. FLECTOR [Suspect]
     Active Substance: DICLOFENAC EPOLAMINE
     Indication: PAIN IN EXTREMITY
     Dosage: FROM ONE PATCH AND ONE INCH STRIP APPLIED JUST ABOUT EVERY 12 AND A HALF HOURS
     Dates: start: 2017
  2. FLECTOR [Suspect]
     Active Substance: DICLOFENAC EPOLAMINE
     Indication: BACK PAIN
     Dosage: FROM ONE PATCH AND ONE INCH STRIP APPLIED JUST ABOUT EVERY 12 AND A HALF HOURS
  3. HYDROCODONE [Concomitant]
     Active Substance: HYDROCODONE
     Indication: NECK PAIN
  4. HYDROCODONE [Concomitant]
     Active Substance: HYDROCODONE
     Indication: PAIN IN EXTREMITY
  5. FLECTOR [Suspect]
     Active Substance: DICLOFENAC EPOLAMINE
     Dosage: UNK

REACTIONS (3)
  - Pruritus [Unknown]
  - Intentional product misuse [Unknown]
  - Product prescribing error [Unknown]
